FAERS Safety Report 9138197 (Version 2)
Quarter: 2013Q1

REPORT INFORMATION
  Report Type: Report from Study
  Country: MX (occurrence: MX)
  Receive Date: 20130304
  Receipt Date: 20130312
  Transmission Date: 20140127
  Serious: Yes (Disabling)
  Sender: FDA-Public Use
  Company Number: PHHY2012MX070255

PATIENT
  Sex: Female

DRUGS (7)
  1. EXFORGE [Suspect]
     Indication: HYPERTENSION
     Dosage: 3 DF (160/10MG), PER DAY
     Route: 048
  2. EXFORGE [Suspect]
     Dosage: 1 DF (160/5MG), PER DAY
  3. STALEVO [Suspect]
     Indication: PARKINSON^S DISEASE
     Dosage: 3 DF (200/150/37.5MG), UNK
     Dates: start: 20081209, end: 200812
  4. STALEVO [Suspect]
     Dosage: 4 DF (200/100/25MG), UNK
     Route: 048
     Dates: start: 200812
  5. CLOPIDOGREL [Concomitant]
     Indication: CARDIAC DISORDER
     Dosage: 1 DF, UNK
     Route: 048
     Dates: start: 200701
  6. PRAMIPEXOLE [Concomitant]
     Dosage: 3 DF, PER DAY
     Dates: start: 2010
  7. SERTRALINE [Concomitant]
     Dosage: 1 DF, PER DAY
     Dates: start: 2011

REACTIONS (4)
  - Abasia [Not Recovered/Not Resolved]
  - Spinal disorder [Not Recovered/Not Resolved]
  - Spinal pain [Not Recovered/Not Resolved]
  - Arthralgia [Not Recovered/Not Resolved]
